FAERS Safety Report 8177351-0 (Version None)
Quarter: 2012Q1

REPORT INFORMATION
  Report Type: 
  Country: None (occurrence: None)
  Receive Date: 20120301
  Receipt Date: 20120221
  Transmission Date: 20120608
  Serious: Yes (Hospitalization)
  Sender: FDA-Public Use
  Company Number: US-BAYER-2011-033714

PATIENT
  Age: 33 Year
  Sex: Female
  Weight: 84.807 kg

DRUGS (9)
  1. SULFAMETHOXAZOLE + TRIMETHOPRIM [Concomitant]
     Indication: PYREXIA
  2. CLINDAMYCIN [Concomitant]
     Indication: PYREXIA
  3. YASMIN [Suspect]
     Indication: POLYCYSTIC OVARIES
  4. SULFAMETHOXAZOLE + TRIMETHOPRIM [Concomitant]
     Indication: POST PROCEDURAL INFECTION
     Dosage: REGULAR STRENGTH TABLET 2 TIMES A DAY
     Dates: start: 20090416, end: 20090426
  5. YASMIN [Suspect]
     Indication: ACNE
     Dosage: UNK
     Dates: start: 19980101, end: 20080701
  6. YAZ [Suspect]
     Indication: ACNE
     Dosage: UNK
     Dates: start: 20080701, end: 20090401
  7. CLINDAMYCIN [Concomitant]
     Indication: POST PROCEDURAL INFECTION
     Dosage: 300 MG, QID
     Dates: start: 20090416, end: 20090426
  8. YAZ [Suspect]
     Indication: POLYCYSTIC OVARIES
  9. METOCLOPRAMIDE [Concomitant]
     Indication: PROCEDURAL NAUSEA
     Dosage: 5 MG, PRN
     Dates: start: 20090414

REACTIONS (9)
  - PAIN IN EXTREMITY [None]
  - DEEP VEIN THROMBOSIS [None]
  - EMOTIONAL DISTRESS [None]
  - OEDEMA PERIPHERAL [None]
  - GENERAL PHYSICAL HEALTH DETERIORATION [None]
  - MENTAL DISORDER [None]
  - PAIN [None]
  - FEAR OF DISEASE [None]
  - ANXIETY [None]
